FAERS Safety Report 8052423-X (Version None)
Quarter: 2012Q1

REPORT INFORMATION
  Report Type: 
  Country: None (occurrence: None)
  Receive Date: 20120118
  Receipt Date: 20120103
  Transmission Date: 20120608
  Serious: Yes (Death, Other)
  Sender: FDA-Public Use
  Company Number: SG-CELGENEUS-286-20785-10090921

PATIENT

DRUGS (3)
  1. THALIDOMIDE [Suspect]
     Indication: MULTIPLE MYELOMA
     Dosage: FROM 50MG WEEKLY TO 100MG DAILY
     Route: 048
  2. DEXAMETHASONE [Suspect]
     Indication: MULTIPLE MYELOMA
     Route: 065
  3. ZOLEDRONIC ACID [Suspect]
     Indication: MULTIPLE MYELOMA
     Route: 041

REACTIONS (15)
  - ARRHYTHMIA [None]
  - SEPSIS [None]
  - BRONCHOPNEUMONIA [None]
  - URINARY TRACT INFECTION [None]
  - HAEMATOMA [None]
  - HYPOPROTEINAEMIA [None]
  - BONE PAIN [None]
  - DYSPEPSIA [None]
  - AZOTAEMIA [None]
  - NERVOUS SYSTEM DISORDER [None]
  - VISUAL ACUITY REDUCED [None]
  - METABOLIC DISORDER [None]
  - GASTROINTESTINAL INFECTION [None]
  - SPINAL FRACTURE [None]
  - DEATH [None]
